FAERS Safety Report 8510051-3 (Version None)
Quarter: 2012Q2

REPORT INFORMATION
  Report Type: 
  Country: None (occurrence: None)
  Receive Date: 20120405
  Receipt Date: 20081006
  Transmission Date: 20120825
  Serious: Yes (Other)
  Sender: FDA-Public Use
  Company Number: PHEH2008US07925

PATIENT
  Sex: Female

DRUGS (1)
  1. RECLAST [Suspect]
     Indication: OSTEOPOROSIS
     Dosage: USUAL, YEARLY, INFUSION
     Dates: start: 20080818

REACTIONS (8)
  - ARTHRALGIA [None]
  - CHILLS [None]
  - MYALGIA [None]
  - PYREXIA [None]
  - MUSCULOSKELETAL STIFFNESS [None]
  - INFLUENZA LIKE ILLNESS [None]
  - DYSPNOEA [None]
  - MOVEMENT DISORDER [None]
